FAERS Safety Report 8845861 (Version 1)
Quarter: 2012Q4

REPORT INFORMATION
  Report Type: 
  Country: US (occurrence: US)
  Receive Date: 20121017
  Receipt Date: 20121017
  Transmission Date: 20130627
  Serious: Yes (Death)
  Sender: FDA-Public Use
  Company Number: US-ROCHE-1115961

PATIENT
  Sex: Female

DRUGS (9)
  1. NUTROPIN AQ [Suspect]
     Indication: DWARFISM
     Route: 065
     Dates: start: 20010123
  2. SYNTHROID [Concomitant]
     Route: 065
  3. CELEBREX [Concomitant]
     Route: 065
  4. NAPROSYN [Concomitant]
     Route: 065
  5. ASA [Concomitant]
     Route: 065
  6. NIACIN [Concomitant]
  7. SKELAXIN [Concomitant]
  8. VIOXX [Concomitant]
     Route: 065
  9. FIBERCON [Concomitant]

REACTIONS (2)
  - Death [Fatal]
  - Sinus congestion [Unknown]
